FAERS Safety Report 7093879-9 (Version None)
Quarter: 2010Q4

REPORT INFORMATION
  Report Type: 
  Country: None (occurrence: None)
  Receive Date: 20101102
  Receipt Date: 20101020
  Transmission Date: 20110411
  Serious: Yes (Other)
  Sender: FDA-Public Use
  Company Number: ACO_02896_2010

PATIENT
  Age: 57 Year
  Sex: Male
  Weight: 86.1834 kg

DRUGS (14)
  1. AMPYRA [Suspect]
     Indication: GAIT DISTURBANCE
     Dosage: (10 MG BID ORAL)
     Route: 048
     Dates: start: 20100722, end: 20101021
  2. COPAXONE /03175301/ [Concomitant]
  3. PROVIGIL [Concomitant]
  4. BACLOFEN [Concomitant]
  5. LIPITOR [Concomitant]
  6. PLAVIX [Concomitant]
  7. ZETIA [Concomitant]
  8. NIASPAN [Concomitant]
  9. AVODART [Concomitant]
  10. FLOMAX /01280302/ [Concomitant]
  11. MEN'S VITAMINS [Concomitant]
  12. CALCIUM + VITAMIN D [Concomitant]
  13. DULCOLAX [Concomitant]
  14. METAMUCIL /00091301/ [Concomitant]

REACTIONS (2)
  - HYPERTENSION [None]
  - SARCOIDOSIS [None]
